FAERS Safety Report 24220108 (Version 1)
Quarter: 2024Q3

REPORT INFORMATION
  Report Type: Report from Study
  Country: MX (occurrence: MX)
  Receive Date: 20240817
  Receipt Date: 20240817
  Transmission Date: 20241016
  Serious: Yes (Hospitalization, Other)
  Sender: NOVARTIS
  Company Number: MX-002147023-NVSC2024MX135763

PATIENT
  Age: 71 Year
  Sex: Female
  Weight: 30 kg

DRUGS (4)
  1. KISQALI [Suspect]
     Active Substance: RIBOCICLIB
     Indication: Breast cancer
     Dosage: 3 DOSAGE FORM, QD (3 X 200MG)
     Route: 048
     Dates: start: 2020, end: 2022
  2. KISQALI [Suspect]
     Active Substance: RIBOCICLIB
     Dosage: 2 DOSAGE FORM, QD (2 X 200MG)
     Route: 048
     Dates: start: 2022, end: 20240619
  3. KISQALI [Suspect]
     Active Substance: RIBOCICLIB
     Dosage: 2 DOSAGE FORM, QD (2 X 200MG)
     Route: 048
     Dates: start: 20240624
  4. MORPHINE [Concomitant]
     Active Substance: MORPHINE
     Indication: Product used for unknown indication
     Dosage: UNK
     Route: 065

REACTIONS (18)
  - Skin burning sensation [Recovered/Resolved]
  - Neuropathy peripheral [Recovered/Resolved]
  - Facial paralysis [Unknown]
  - Hypoaesthesia oral [Not Recovered/Not Resolved]
  - Oral pain [Not Recovered/Not Resolved]
  - Insomnia [Unknown]
  - Fall [Unknown]
  - Coronary artery occlusion [Recovered/Resolved]
  - Cardiovascular disorder [Recovered/Resolved]
  - Neoplasm malignant [Unknown]
  - Anaemia [Unknown]
  - Decreased immune responsiveness [Unknown]
  - Crying [Unknown]
  - Eye pain [Not Recovered/Not Resolved]
  - Gingival pain [Not Recovered/Not Resolved]
  - Dyskinesia [Unknown]
  - Malaise [Unknown]
  - Vision blurred [Unknown]

NARRATIVE: CASE EVENT DATE: 20240401
